FAERS Safety Report 15093399 (Version 1)
Quarter: 2018Q2

REPORT INFORMATION
  Report Type: Spontaneous
  Country: DE (occurrence: DE)
  Receive Date: 20180629
  Receipt Date: 20180629
  Transmission Date: 20180711
  Serious: Yes (Other)
  Sender: FDA-Public Use
  Company Number: DE-LANNETT COMPANY, INC.-DE-2018LAN000773

PATIENT

DRUGS (10)
  1. CRIZOTINIB [Suspect]
     Active Substance: CRIZOTINIB
     Indication: EWING^S SARCOMA
     Dosage: 500 MG, UNK
     Route: 048
  2. SORAFENIB [Suspect]
     Active Substance: SORAFENIB
     Indication: EWING^S SARCOMA
     Dosage: 400 MG, UNK (REDUCED DOSAGE)
     Route: 048
  3. VORINOSTAT [Suspect]
     Active Substance: VORINOSTAT
     Indication: EWING^S SARCOMA
     Dosage: 300 MG, (REDUCED DOSAGE)
     Route: 048
  4. TRETINOIN. [Suspect]
     Active Substance: TRETINOIN
     Indication: EWING^S SARCOMA
     Dosage: 25 MG/M2, UNK (REDUCED DOSAGE)
     Route: 048
  5. ARSENIC TRIOXIDE [Suspect]
     Active Substance: ARSENIC TRIOXIDE
     Indication: EWING^S SARCOMA
     Dosage: 0.1 MG/KG, UNK
     Route: 048
  6. VITAMIN E                          /00110501/ [Suspect]
     Active Substance: TOCOPHEROL
     Indication: EWING^S SARCOMA
     Dosage: 400 IE, UNK
     Route: 048
  7. HYDROCHLOROTHIAZIDE; TRIAMTERENE [Suspect]
     Active Substance: HYDROCHLOROTHIAZIDE\TRIAMTERENE
     Indication: EWING^S SARCOMA
     Dosage: 25 MG, UNK (REDUCED DOSAGE)
     Route: 048
  8. PACLITAXEL. [Suspect]
     Active Substance: PACLITAXEL
     Indication: EWING^S SARCOMA
     Dosage: 200 MG/M2, (STANDARD DOSAGE)
     Route: 042
  9. VINCRISTINE [Suspect]
     Active Substance: VINCRISTINE
     Indication: EWING^S SARCOMA
     Dosage: UNK
     Route: 065
  10. VORINOSTAT [Suspect]
     Active Substance: VORINOSTAT
     Dosage: 400 MG, UNK
     Route: 048

REACTIONS (4)
  - Lymphopenia [Unknown]
  - Anaemia [Unknown]
  - Activated partial thromboplastin time prolonged [Unknown]
  - Thrombocytopenia [Unknown]
